FAERS Safety Report 6648804-9 (Version None)
Quarter: 2010Q1

REPORT INFORMATION
  Report Type: 
  Country: None (occurrence: None)
  Receive Date: 20100324
  Receipt Date: 20100312
  Transmission Date: 20100710
  Serious: Yes (Other)
  Sender: FDA-Public Use
  Company Number: PHHY2010US15933

PATIENT
  Sex: Female

DRUGS (8)
  1. RECLAST [Suspect]
     Dosage: UNK
     Dates: start: 20080501
  2. METFORMIN HCL [Concomitant]
  3. GLYBURIDE [Concomitant]
  4. LISINOPRIL [Concomitant]
  5. VITAMIN C [Concomitant]
  6. MULTI-VITAMINS [Concomitant]
  7. CELEBREX [Concomitant]
  8. HYDROCODONE [Concomitant]

REACTIONS (1)
  - KNEE ARTHROPLASTY [None]
